FAERS Safety Report 10571392 (Version 2)
Quarter: 2015Q1

REPORT INFORMATION
  Report Type: Spontaneous
  Country: US (occurrence: US)
  Receive Date: 20141107
  Receipt Date: 20150107
  Transmission Date: 20150720
  Serious: No
  Sender: FDA-Public Use
  Company Number: US-RECKITT BENCKISER PHARMACEUTICAL, INC-RB-73197-2014

PATIENT
  Age: 1 Day
  Sex: Male
  Weight: 3.41 kg

DRUGS (7)
  1. SUBOXONE [Suspect]
     Active Substance: BUPRENORPHINE HYDROCHLORIDE\NALOXONE HYDROCHLORIDE
     Indication: DRUG DEPENDENCE
     Dosage: 8 MG, TID
     Route: 064
     Dates: start: 20130707, end: 20140422
  2. SUBOXONE [Suspect]
     Active Substance: BUPRENORPHINE HYDROCHLORIDE\NALOXONE HYDROCHLORIDE
     Dosage: 8 MG, TID
     Route: 063
     Dates: start: 2014, end: 2014
  3. SYNTHROID [Suspect]
     Active Substance: LEVOTHYROXINE SODIUM
     Indication: HYPOTHYROIDISM
     Dosage: 88 ?G, QD
     Route: 064
     Dates: start: 20130707, end: 20140422
  4. SUDAFED [Suspect]
     Active Substance: PSEUDOEPHEDRINE HYDROCHLORIDE
     Indication: HYPERSENSITIVITY
     Dosage: 250 UNK, BID
     Route: 064
     Dates: start: 20130707, end: 20140422
  5. METFORMIN [Suspect]
     Active Substance: METFORMIN HYDROCHLORIDE
     Indication: POLYCYSTIC OVARIES
     Dosage: 500 MG, QD
     Route: 064
     Dates: start: 20130707, end: 201310
  6. ZOFRAN [Suspect]
     Active Substance: ONDANSETRON HYDROCHLORIDE
     Indication: NAUSEA
     Dosage: UNK, PRN
     Route: 064
     Dates: start: 201310, end: 20140422
  7. PRENATAL VITAMIN [Suspect]
     Active Substance: VITAMINS
     Indication: PREGNANCY
     Dosage: ONE DAILY
     Route: 064
     Dates: start: 20130707, end: 20140422

REACTIONS (3)
  - Foetal exposure during pregnancy [Recovered/Resolved]
  - Medical observation [Recovered/Resolved]
  - Exposure during breast feeding [Recovered/Resolved]

NARRATIVE: CASE EVENT DATE: 20130707
